FAERS Safety Report 6466885-2 (Version None)
Quarter: 2009Q4

REPORT INFORMATION
  Report Type: 
  Country: None (occurrence: None)
  Receive Date: 20091202
  Receipt Date: 20091118
  Transmission Date: 20100525
  Serious: No
  Sender: FDA-Public Use
  Company Number: US-B.I. PHARMACEUTICALS,INC./RIDGEFIELD-2009-BP-12877BP

PATIENT
  Age: 67 Year
  Sex: Female

DRUGS (3)
  1. MICARDIS [Suspect]
     Indication: HYPERTENSION
     Dosage: 40 MG
     Route: 048
     Dates: start: 20090914
  2. CYCLOSPORINE [Concomitant]
     Indication: THROMBOCYTOPENIA
     Dates: start: 20050101
  3. ATENOLOL [Concomitant]
     Indication: HYPERTENSION
     Dates: start: 20080101

REACTIONS (4)
  - BACK PAIN [None]
  - DIARRHOEA [None]
  - DYSPEPSIA [None]
  - OROPHARYNGEAL PAIN [None]
